FAERS Safety Report 18376726 (Version 4)
Quarter: 2022Q4

REPORT INFORMATION
  Report Type: Report from Study
  Country: JP (occurrence: JP)
  Receive Date: 20201013
  Receipt Date: 20221210
  Transmission Date: 20230113
  Serious: Yes (Other)
  Sender: FDA-Public Use
  Company Number: JP-JNJFOC-20160815925

PATIENT
  Age: 58 Year
  Sex: Male

DRUGS (35)
  1. DARUNAVIR [Suspect]
     Active Substance: DARUNAVIR
     Indication: HIV infection
     Route: 048
     Dates: start: 20120229, end: 20130129
  2. DARUNAVIR [Suspect]
     Active Substance: DARUNAVIR
     Route: 048
     Dates: start: 20141204
  3. EPZICOM [Suspect]
     Active Substance: ABACAVIR SULFATE\LAMIVUDINE
     Indication: HIV infection
     Route: 048
     Dates: start: 20120229, end: 20140923
  4. KALETRA [Suspect]
     Active Substance: LOPINAVIR\RITONAVIR
     Indication: HIV infection
     Route: 048
     Dates: start: 20061031, end: 20100331
  5. KALETRA [Suspect]
     Active Substance: LOPINAVIR\RITONAVIR
     Indication: HIV infection
     Route: 048
     Dates: start: 20100401, end: 20120228
  6. NORVIR [Suspect]
     Active Substance: RITONAVIR
     Indication: HIV infection
     Route: 048
     Dates: start: 20120229, end: 20130129
  7. NORVIR [Suspect]
     Active Substance: RITONAVIR
     Indication: HIV infection
     Route: 048
     Dates: start: 20141204
  8. TRUVADA [Suspect]
     Active Substance: EMTRICITABINE\TENOFOVIR DISOPROXIL FUMARATE
     Indication: HIV infection
     Route: 048
     Dates: start: 20061031, end: 20120228
  9. RILPIVIRINE HYDROCHLORIDE [Concomitant]
     Active Substance: RILPIVIRINE HYDROCHLORIDE
     Indication: HIV infection
     Route: 048
     Dates: start: 20130130, end: 20140923
  10. TIVICAY [Concomitant]
     Active Substance: DOLUTEGRAVIR SODIUM
     Indication: HIV infection
     Route: 048
     Dates: start: 20141204
  11. MARAVIROC [Concomitant]
     Active Substance: MARAVIROC
     Indication: HIV infection
     Route: 048
     Dates: start: 20141204
  12. AZITHROMYCIN DIHYDRATE [Concomitant]
     Active Substance: AZITHROMYCIN DIHYDRATE
     Indication: Opportunistic infection prophylaxis
     Route: 065
     Dates: start: 20061004, end: 20070104
  13. AZITHROMYCIN DIHYDRATE [Concomitant]
     Active Substance: AZITHROMYCIN DIHYDRATE
     Route: 065
     Dates: start: 20141121, end: 20141224
  14. CLARITHROMYCIN [Concomitant]
     Active Substance: CLARITHROMYCIN
     Indication: Opportunistic infection prophylaxis
     Route: 048
     Dates: start: 20141225, end: 20150123
  15. VALGANCICLOVIR [Concomitant]
     Active Substance: VALGANCICLOVIR
     Indication: Cytomegalovirus infection
     Route: 048
     Dates: start: 20141203, end: 20141211
  16. RIVOTRIL [Concomitant]
     Active Substance: CLONAZEPAM
     Indication: Essential tremor
     Route: 048
     Dates: start: 20111027, end: 20120104
  17. RIVOTRIL [Concomitant]
     Active Substance: CLONAZEPAM
     Indication: Essential tremor
     Route: 048
     Dates: start: 20120216, end: 20120321
  18. RIVOTRIL [Concomitant]
     Active Substance: CLONAZEPAM
     Indication: Essential tremor
     Route: 048
     Dates: start: 20120322, end: 20120926
  19. RIVOTRIL [Concomitant]
     Active Substance: CLONAZEPAM
     Indication: Essential tremor
     Route: 048
     Dates: start: 20141121
  20. METOCLOPRAMIDE [Concomitant]
     Active Substance: METOCLOPRAMIDE
     Indication: Nausea
     Route: 048
     Dates: start: 20120404, end: 20120508
  21. METOCLOPRAMIDE [Concomitant]
     Active Substance: METOCLOPRAMIDE
     Indication: Nausea
     Route: 048
     Dates: start: 20120509, end: 20130129
  22. METOCLOPRAMIDE [Concomitant]
     Active Substance: METOCLOPRAMIDE
     Indication: Nausea
     Route: 048
     Dates: start: 20151126
  23. MINODRONIC ACID [Concomitant]
     Active Substance: MINODRONIC ACID
     Indication: Osteoporosis
     Route: 048
     Dates: start: 20120927, end: 20141120
  24. MINODRONIC ACID [Concomitant]
     Active Substance: MINODRONIC ACID
     Indication: Osteoporosis
     Route: 048
     Dates: start: 20150623
  25. DIAZEPAM [Concomitant]
     Active Substance: DIAZEPAM
     Indication: Essential tremor
     Route: 048
     Dates: start: 20110401, end: 20111026
  26. DIAZEPAM [Concomitant]
     Active Substance: DIAZEPAM
     Indication: Essential tremor
     Route: 048
     Dates: start: 20120105, end: 20120215
  27. DIAZEPAM [Concomitant]
     Active Substance: DIAZEPAM
     Indication: Essential tremor
     Route: 048
     Dates: start: 20130131, end: 20130228
  28. DIAZEPAM [Concomitant]
     Active Substance: DIAZEPAM
     Indication: Essential tremor
     Route: 048
     Dates: start: 20130301, end: 20141120
  29. PRIMIDONE [Concomitant]
     Active Substance: PRIMIDONE
     Indication: Essential tremor
     Route: 048
     Dates: start: 20120927, end: 20130130
  30. SULFAMETHOXAZOLE\TRIMETHOPRIM [Concomitant]
     Active Substance: SULFAMETHOXAZOLE\TRIMETHOPRIM
     Indication: Pneumocystis jirovecii pneumonia
     Route: 048
     Dates: start: 20141121, end: 20150722
  31. SULFAMETHOXAZOLE\TRIMETHOPRIM [Concomitant]
     Active Substance: SULFAMETHOXAZOLE\TRIMETHOPRIM
     Indication: Prophylaxis
     Route: 048
     Dates: start: 20140924, end: 20141120
  32. PREDNISOLONE [Concomitant]
     Active Substance: PREDNISOLONE
     Indication: Pneumocystis jirovecii pneumonia
     Route: 048
     Dates: start: 20141121, end: 20141212
  33. HARNAL [Concomitant]
     Active Substance: TAMSULOSIN HYDROCHLORIDE
     Indication: Benign prostatic hyperplasia
     Route: 048
     Dates: start: 20141201
  34. FEBUXOSTAT [Concomitant]
     Active Substance: FEBUXOSTAT
     Indication: Hyperuricaemia
     Route: 048
     Dates: start: 20150326
  35. XYZAL [Concomitant]
     Active Substance: LEVOCETIRIZINE DIHYDROCHLORIDE
     Indication: Pruritus
     Route: 048
     Dates: start: 20150423, end: 20171129

REACTIONS (10)
  - Osteoporosis [Not Recovered/Not Resolved]
  - Pneumocystis jirovecii pneumonia [Recovering/Resolving]
  - Cytomegalovirus test positive [Recovering/Resolving]
  - Nausea [Recovered/Resolved]
  - Benign prostatic hyperplasia [Not Recovered/Not Resolved]
  - Hyperuricaemia [Not Recovered/Not Resolved]
  - Nausea [Not Recovered/Not Resolved]
  - Pruritus [Recovering/Resolving]
  - Hypo HDL cholesterolaemia [Not Recovered/Not Resolved]
  - Blood alkaline phosphatase increased [Recovered/Resolved]

NARRATIVE: CASE EVENT DATE: 20120301
